FAERS Safety Report 8948055 (Version 1)
Quarter: 2012Q4

REPORT INFORMATION
  Report Type: 
  Country: US (occurrence: US)
  Receive Date: 20121204
  Receipt Date: 20121204
  Transmission Date: 20130627
  Serious: No
  Sender: FDA-Public Use
  Company Number: US-ASTRAZENECA-2012SE26109

PATIENT
  Age: 66 Year
  Sex: Female
  Weight: 65.3 kg

DRUGS (6)
  1. NEXIUM [Suspect]
     Indication: GASTROOESOPHAGEAL REFLUX DISEASE
     Route: 048
     Dates: start: 2007
  2. OMEPRAZOLE [Suspect]
     Indication: GASTROOESOPHAGEAL REFLUX DISEASE
     Route: 048
  3. CRESTOR [Suspect]
     Route: 048
  4. ADALAT [Concomitant]
     Indication: HYPERTENSION
     Dosage: 150 MG/12.5 MG DAILY
     Route: 048
  5. CLONAZEPAM [Concomitant]
     Indication: ANXIETY
     Route: 048
  6. PREVACID [Concomitant]

REACTIONS (4)
  - Cough [Unknown]
  - Myalgia [Unknown]
  - Drug hypersensitivity [Unknown]
  - Drug ineffective [Unknown]
